FAERS Safety Report 14853805 (Version 2)
Quarter: 2018Q2

REPORT INFORMATION
  Report Type: Spontaneous
  Country: US (occurrence: US)
  Receive Date: 20180507
  Receipt Date: 20180622
  Transmission Date: 20180711
  Serious: Yes (Life-Threatening, Disabling)
  Sender: FDA-Public Use
  Company Number: US-009507513-1805USA001412

PATIENT
  Age: 62 Year
  Sex: Male

DRUGS (7)
  1. OXYCODONE [Concomitant]
     Active Substance: OXYCODONE
  2. EMEND [Suspect]
     Active Substance: APREPITANT
     Indication: VOMITING
  3. OXYCONTIN [Concomitant]
     Active Substance: OXYCODONE HYDROCHLORIDE
  4. ZOMETA [Concomitant]
     Active Substance: ZOLEDRONIC ACID
  5. ATIVAN [Concomitant]
     Active Substance: LORAZEPAM
  6. EMEND [Suspect]
     Active Substance: APREPITANT
     Indication: NAUSEA
     Dosage: 150 MG, Q3W
     Route: 042
     Dates: start: 20180315, end: 20180425
  7. COMPAZINE [Concomitant]
     Active Substance: PROCHLORPERAZINE MALEATE

REACTIONS (1)
  - Disease progression [Unknown]

NARRATIVE: CASE EVENT DATE: 20180425
